FAERS Safety Report 6526960-0 (Version None)
Quarter: 2010Q1

REPORT INFORMATION
  Report Type: 
  Country: None (occurrence: None)
  Receive Date: 20100105
  Receipt Date: 20091225
  Transmission Date: 20100710
  Serious: Yes (Death, Life-Threatening)
  Sender: FDA-Public Use
  Company Number: JP-WYE-H12393209

PATIENT
  Sex: Male
  Weight: 49 kg

DRUGS (6)
  1. ZOSYN [Suspect]
     Indication: PNEUMONIA
     Route: 042
     Dates: start: 20091107, end: 20091107
  2. NITROGLICERINA [Concomitant]
     Indication: ANGINA PECTORIS
     Dosage: UNKNOWN
     Route: 060
  3. BISOLVON [Concomitant]
     Route: 042
     Dates: start: 20091107
  4. INSULIN [Concomitant]
     Indication: DIABETES MELLITUS
     Route: 058
  5. GLUCOSE W/ELECTROLYTES [Concomitant]
     Route: 042
     Dates: start: 20091107
  6. VITAMEDIN [Concomitant]
     Dosage: 1 VIAL DAILY
     Route: 042

REACTIONS (3)
  - ANAPHYLACTIC SHOCK [None]
  - MULTI-ORGAN FAILURE [None]
  - MYOCARDIAL INFARCTION [None]
